FAERS Safety Report 5798978-7 (Version None)
Quarter: 2008Q3

REPORT INFORMATION
  Report Type: 
  Country: None (occurrence: None)
  Receive Date: 20080701
  Receipt Date: 20080617
  Transmission Date: 20090109
  Serious: Yes (Other)
  Sender: FDA-Public Use
  Company Number: 2008S1010554

PATIENT
  Age: 91 Year
  Sex: Female
  Weight: 63.5036 kg

DRUGS (7)
  1. FENTANYL TRANSDERMAL SYSTEM [Suspect]
     Indication: NEUROPATHY PERIPHERAL
     Dosage: 200 UG;EVERY HOUR;TRANSDERMAL
     Route: 062
     Dates: start: 20070101
  2. LORAZEPAM [Concomitant]
  3. SEROQUEL [Concomitant]
  4. REMERON [Concomitant]
  5. METOPROLOL [Concomitant]
  6. CYMBALTA [Concomitant]
  7. CEPHALEXIN [Concomitant]

REACTIONS (10)
  - CONFUSIONAL STATE [None]
  - CONVERSION DISORDER [None]
  - DRUG EFFECT DECREASED [None]
  - DRUG EFFECT INCREASED [None]
  - DRUG WITHDRAWAL SYNDROME [None]
  - FATIGUE [None]
  - FEELING JITTERY [None]
  - INAPPROPRIATE SCHEDULE OF DRUG ADMINISTRATION [None]
  - INCORRECT DOSE ADMINISTERED [None]
  - PAIN [None]
